FAERS Safety Report 7579938-2 (Version None)
Quarter: 2011Q2

REPORT INFORMATION
  Report Type: 
  Country: None (occurrence: None)
  Receive Date: 20110629
  Receipt Date: 20110620
  Transmission Date: 20111010
  Serious: Yes (Hospitalization)
  Sender: FDA-Public Use
  Company Number: BR-ASTRAZENECA-2011SE37680

PATIENT
  Age: 78 Year
  Sex: Male
  Weight: 81 kg

DRUGS (2)
  1. ATACAND [Suspect]
     Indication: HYPERTENSION
     Route: 048
     Dates: start: 20080101, end: 20110601
  2. ALLOPURINOL [Concomitant]
     Route: 048
     Dates: start: 20090101

REACTIONS (2)
  - CORONARY ARTERY OCCLUSION [None]
  - CORONARY ARTERY BYPASS [None]
